FAERS Safety Report 7529400-8 (Version None)
Quarter: 2011Q2

REPORT INFORMATION
  Report Type: 
  Country: None (occurrence: None)
  Receive Date: 20110607
  Receipt Date: 20110602
  Transmission Date: 20111010
  Serious: Yes (Other)
  Sender: FDA-Public Use
  Company Number: JP-PFIZER INC-2011120026

PATIENT
  Age: 46 Year
  Sex: Male

DRUGS (1)
  1. EPLERENONE [Suspect]
     Dosage: 25 MG, 1X/DAY
     Route: 048
     Dates: start: 20110501

REACTIONS (2)
  - SCLERITIS [None]
  - OCULAR HYPERAEMIA [None]
